FAERS Safety Report 6103080-0 (Version None)
Quarter: 2009Q1

REPORT INFORMATION
  Report Type: 
  Country: None (occurrence: None)
  Receive Date: 20090305
  Receipt Date: 20090224
  Transmission Date: 20090719
  Serious: Yes (Hospitalization)
  Sender: FDA-Public Use
  Company Number: JP-BRISTOL-MYERS SQUIBB COMPANY-14108393

PATIENT
  Age: 27 Year
  Sex: Male

DRUGS (8)
  1. EFAVIRENZ CAPS [Suspect]
     Indication: HIV INFECTION
     Route: 048
     Dates: start: 20050907, end: 20071203
  2. ZERIT [Suspect]
     Indication: HIV INFECTION
     Route: 048
     Dates: start: 20010810, end: 20040222
  3. RETROVIR [Suspect]
     Indication: HIV INFECTION
     Dosage: CAPSULE
     Route: 048
     Dates: start: 20000517, end: 20010809
  4. EPIVIR [Suspect]
     Indication: HIV INFECTION
     Dosage: TABLET
     Route: 048
     Dates: start: 20000517, end: 20040222
  5. TRUVADA [Suspect]
     Indication: HIV INFECTION
     Dosage: 1DF= 1 DOSE/DAILY
     Route: 048
     Dates: start: 20050907, end: 20071203
  6. INSULIN [Concomitant]
     Dosage: 1DF=120 MG Q AM AND 60 MG Q PM
     Route: 058
  7. PIOGLITAZONE HCL [Concomitant]
     Route: 048
     Dates: start: 20060715
  8. FACTOR IX COMPLEX [Concomitant]
     Dosage: 1 DOSAGE FORM = 1 THOUSAND MILLION UNITS 0-3 TIMES/MONTH

REACTIONS (2)
  - HEPATIC CIRRHOSIS [None]
  - OESOPHAGEAL VARICES HAEMORRHAGE [None]
